FAERS Safety Report 13969615 (Version 1)
Quarter: 2017Q3

REPORT INFORMATION
  Report Type: Spontaneous
  Country: US (occurrence: US)
  Receive Date: 20170914
  Receipt Date: 20170914
  Transmission Date: 20171128
  Serious: No
  Sender: FDA-Public Use
  Company Number: US-BIOMARINAP-US-2017-115380

PATIENT
  Sex: Female
  Weight: 12.8 kg

DRUGS (1)
  1. VIMIZIM [Suspect]
     Active Substance: ELOSULFASE ALFA
     Indication: PRODUCT USED FOR UNKNOWN INDICATION
     Dosage: 30 MG, QW
     Route: 065
     Dates: start: 20141205

REACTIONS (2)
  - Sleep apnoea syndrome [Unknown]
  - Tonsillar hypertrophy [Unknown]
